FAERS Safety Report 10041984 (Version 3)
Quarter: 2014Q2

REPORT INFORMATION
  Report Type: Report from Study
  Country: US (occurrence: US)
  Receive Date: 20140327
  Receipt Date: 20140408
  Transmission Date: 20141212
  Serious: Yes (Hospitalization, Other)
  Sender: FDA-Public Use
  Company Number: US-SA-2013SA102113

PATIENT
  Age: 41 Year
  Sex: Female

DRUGS (1)
  1. AUBAGIO [Suspect]
     Indication: MULTIPLE SCLEROSIS
     Route: 048
     Dates: start: 20130922, end: 20140326

REACTIONS (11)
  - Multiple sclerosis relapse [Unknown]
  - Fall [Unknown]
  - Gait disturbance [Unknown]
  - Central nervous system lesion [Unknown]
  - Visual impairment [Unknown]
  - Movement disorder [Unknown]
  - Vomiting [Unknown]
  - Liver function test abnormal [Unknown]
  - Alopecia [Unknown]
  - Abdominal pain upper [Recovered/Resolved]
  - Nausea [Unknown]
